FAERS Safety Report 4912850-3 (Version None)
Quarter: 2006Q1

REPORT INFORMATION
  Report Type: 
  Country: None (occurrence: None)
  Receive Date: 20060210
  Receipt Date: 20060127
  Transmission Date: 20060701
  Serious: Yes (Life-Threatening)
  Sender: FDA-Public Use
  Company Number: B0408279A

PATIENT
  Age: 13 Year
  Sex: Female

DRUGS (2)
  1. ALKERAN [Suspect]
     Dosage: INTRAVENOUS
     Route: 042
  2. THIOPETA [Concomitant]

REACTIONS (2)
  - PYREXIA [None]
  - RECURRENT CANCER [None]
